FAERS Safety Report 10987160 (Version 2)
Quarter: 2015Q2

REPORT INFORMATION
  Report Type: Spontaneous
  Country: US (occurrence: US)
  Receive Date: 20150404
  Receipt Date: 20150525
  Transmission Date: 20150821
  Serious: Yes (Hospitalization)
  Sender: FDA-Public Use
  Company Number: US-JNJFOC-20140900941

PATIENT
  Sex: Female

DRUGS (4)
  1. IMURAN [Concomitant]
     Active Substance: AZATHIOPRINE
     Route: 065
  2. REMICADE [Suspect]
     Active Substance: INFLIXIMAB
     Indication: INFLAMMATORY BOWEL DISEASE
     Dosage: INITIATION DOSE
     Route: 042
     Dates: start: 2014
  3. REMICADE [Suspect]
     Active Substance: INFLIXIMAB
     Indication: INFLAMMATORY BOWEL DISEASE
     Dosage: SEVERAL YEARS PRIOR TO THE DATE OF THIS REPORT
     Route: 042
  4. REMICADE [Suspect]
     Active Substance: INFLIXIMAB
     Indication: INFLAMMATORY BOWEL DISEASE
     Dosage: SECOND INFUSION
     Route: 042
     Dates: start: 2014, end: 2014

REACTIONS (1)
  - Infusion related reaction [Recovered/Resolved]

NARRATIVE: CASE EVENT DATE: 2014
